FAERS Safety Report 5642239-3 (Version None)
Quarter: 2008Q1

REPORT INFORMATION
  Report Type: 
  Country: None (occurrence: None)
  Receive Date: 20080212
  Receipt Date: 20080212
  Transmission Date: 20080703
  Serious: Yes (Other)
  Sender: FDA-Public Use
  Company Number: US-WYE-H02623308

PATIENT
  Age: 73 Year
  Sex: Female

DRUGS (3)
  1. CALTRATE PLUS (CALCIUM CARBONATE/ VITAMIN D/ZINC, TABLET) [Suspect]
     Indication: NUTRITIONAL SUPPORT
     Dosage: 1 TABLET 2X PER 1 DAY ORAL
     Route: 048
     Dates: start: 20070101, end: 20070101
  2. COD-LIVER (COD-LIVER OIL), 1 CAPSULE 1X PER 1 DAY [Concomitant]
  3. B100 (AMINOBENZOIC ACID/ BIOTIN/ CHOLINE BITARTRATE/ FOLIC ACID/ INOSI [Concomitant]

REACTIONS (1)
  - CONSTIPATION [None]
